FAERS Safety Report 5013492-4 (Version None)
Quarter: 2006Q2

REPORT INFORMATION
  Report Type: 
  Country: None (occurrence: None)
  Receive Date: 20060530
  Receipt Date: 20051103
  Transmission Date: 20061013
  Serious: Yes (Hospitalization)
  Sender: FDA-Public Use
  Company Number: US-MERCK-0511USA00653

PATIENT
  Age: 75 Year
  Sex: Female
  Weight: 66 kg

DRUGS (5)
  1. FOSAMAX PLUS D [Suspect]
     Indication: OSTEOPOROSIS
     Route: 048
     Dates: start: 20051019, end: 20051102
  2. NEURONTIN [Concomitant]
     Route: 065
  3. PREDNISONE [Concomitant]
     Indication: SJOGREN'S SYNDROME
     Route: 065
  4. VICODIN [Concomitant]
     Indication: PAIN
     Route: 048
  5. CARDIZEM [Concomitant]
     Route: 065

REACTIONS (9)
  - ANAPHYLACTIC REACTION [None]
  - ANGIONEUROTIC OEDEMA [None]
  - BLOOD PRESSURE INADEQUATELY CONTROLLED [None]
  - CHEST DISCOMFORT [None]
  - GASTRITIS [None]
  - HEADACHE [None]
  - HYPERTENSIVE CRISIS [None]
  - HYPONATRAEMIA [None]
  - NERVOUSNESS [None]
